FAERS Safety Report 4507176-6 (Version None)
Quarter: 2004Q4

REPORT INFORMATION
  Report Type: 
  Country: None (occurrence: None)
  Receive Date: 20041122
  Receipt Date: 20041116
  Transmission Date: 20050328
  Serious: Yes (Hospitalization)
  Sender: FDA-Public Use
  Company Number: US-MERCK-0411USA02846

PATIENT
  Sex: Female

DRUGS (6)
  1. VIOXX [Suspect]
     Indication: ARTHRITIS
     Route: 048
  2. WELLBUTRIN [Concomitant]
     Route: 065
  3. NORTRIPTYLINE [Concomitant]
     Route: 065
  4. ENDOCET [Concomitant]
     Route: 065
  5. NAPROXEN [Concomitant]
     Route: 065
  6. KEFLEX [Concomitant]
     Route: 065

REACTIONS (2)
  - HAEMORRHAGE [None]
  - OVARIAN CYST RUPTURED [None]
